FAERS Safety Report 19764215 (Version 1)
Quarter: 2021Q3

REPORT INFORMATION
  Report Type: Report from Study
  Country: US (occurrence: US)
  Receive Date: 20210830
  Receipt Date: 20210830
  Transmission Date: 20211014
  Serious: Yes (Other)
  Sender: FDA-Public Use
  Company Number: US-SA-2021SA142240

PATIENT
  Age: 61 Year
  Sex: Female

DRUGS (3)
  1. TERIFLUNOMIDE. [Suspect]
     Active Substance: TERIFLUNOMIDE
     Dosage: 14 MG, QD
     Route: 048
     Dates: start: 20210412, end: 20210816
  2. TERIFLUNOMIDE. [Suspect]
     Active Substance: TERIFLUNOMIDE
     Indication: MULTIPLE SCLEROSIS
     Dosage: 7 MG, QD
     Route: 048
  3. TERIFLUNOMIDE. [Suspect]
     Active Substance: TERIFLUNOMIDE
     Dosage: 14 MG, QD
     Route: 048
     Dates: start: 2021

REACTIONS (10)
  - Mental impairment [Recovered/Resolved]
  - Pain [Recovered/Resolved]
  - Pain in extremity [Recovering/Resolving]
  - Headache [Recovered/Resolved]
  - Anxiety [Recovered/Resolved]
  - Abdominal discomfort [Recovered/Resolved]
  - Depression [Not Recovered/Not Resolved]
  - Hyperchlorhydria [Not Recovered/Not Resolved]
  - Discomfort [Not Recovered/Not Resolved]
  - Paraesthesia [Recovered/Resolved]
